FAERS Safety Report 6196521-4 (Version None)
Quarter: 2009Q2

REPORT INFORMATION
  Report Type: 
  Country: None (occurrence: None)
  Receive Date: 20090518
  Receipt Date: 20090518
  Transmission Date: 20091009
  Serious: No
  Sender: FDA-Public Use
  Company Number: None

PATIENT
  Sex: Male

DRUGS (1)
  1. RISPERIDONE [Suspect]
     Dosage: 1 MG BID PO
     Route: 048
     Dates: start: 20090401, end: 20090415

REACTIONS (1)
  - PHARYNGEAL OEDEMA [None]
